FAERS Safety Report 11403716 (Version 1)
Quarter: 2015Q3

REPORT INFORMATION
  Report Type: Spontaneous
  Country: US (occurrence: None)
  Receive Date: 20150807
  Receipt Date: 20150807
  Transmission Date: 20151125
  Serious: No
  Sender: FDA-Public Use
  Company Number: 2015FE02166

PATIENT
  Age: 68 Year
  Sex: Male
  Weight: 88.4 kg

DRUGS (2)
  1. PREPOPIK [Suspect]
     Active Substance: ANHYDROUS CITRIC ACID\MAGNESIUM OXIDE\SODIUM PICOSULFATE
     Indication: COLONOSCOPY
     Dosage: SPLIT-DAY DOSING
     Route: 048
     Dates: start: 20150624
  2. PREPOPIK [Suspect]
     Active Substance: ANHYDROUS CITRIC ACID\MAGNESIUM OXIDE\SODIUM PICOSULFATE
     Indication: BOWEL PREPARATION
     Dosage: SPLIT-DAY DOSING
     Route: 048
     Dates: start: 20150624

REACTIONS (3)
  - Dizziness [None]
  - Gastrointestinal motility disorder [None]
  - Abdominal distension [None]

NARRATIVE: CASE EVENT DATE: 20150625
